FAERS Safety Report 23309122 (Version 1)
Quarter: 2023Q4

REPORT INFORMATION
  Report Type: Spontaneous
  Country: US (occurrence: US)
  Receive Date: 20231218
  Receipt Date: 20231218
  Transmission Date: 20240109
  Serious: No
  Sender: FDA-Public Use
  Company Number: US-SANDOZ-SDZ2023US068213

PATIENT
  Sex: Male

DRUGS (6)
  1. AZITHROMYCIN [Suspect]
     Active Substance: AZITHROMYCIN
     Dosage: UNK
     Route: 042
     Dates: start: 20231005
  2. AZITHROMYCIN [Suspect]
     Active Substance: AZITHROMYCIN
     Indication: Mycobacterium chelonae infection
     Dosage: UNK
     Route: 065
     Dates: start: 20230829
  3. IMIPENEM [Suspect]
     Active Substance: IMIPENEM
     Indication: Mycobacterium chelonae infection
     Dosage: UNK
     Route: 065
     Dates: start: 20230829
  4. LINEZOLID [Suspect]
     Active Substance: LINEZOLID
     Dosage: UNK
     Route: 042
     Dates: start: 20231005
  5. LINEZOLID [Suspect]
     Active Substance: LINEZOLID
     Indication: Mycobacterium chelonae infection
     Dosage: UNK
     Route: 065
     Dates: start: 20230829
  6. TIGECYCLINE [Suspect]
     Active Substance: TIGECYCLINE
     Indication: Mycobacterium chelonae infection
     Dosage: UNK
     Route: 042
     Dates: start: 20231005

REACTIONS (1)
  - Adverse drug reaction [Unknown]
